FAERS Safety Report 4772218-X (Version None)
Quarter: 2005Q3

REPORT INFORMATION
  Report Type: 
  Country: None (occurrence: None)
  Receive Date: 20050919
  Receipt Date: 20050131
  Transmission Date: 20060218
  Serious: No
  Sender: FDA-Public Use
  Company Number: US-BRISTOL-MYERS SQUIBB COMPANY-12844569

PATIENT
  Age: 57 Year
  Sex: Male

DRUGS (14)
  1. DEFINITY [Suspect]
     Dates: start: 20050131, end: 20050131
  2. VITAMIN B-12 [Concomitant]
     Route: 048
  3. VITAMIN B6 [Concomitant]
     Route: 048
  4. FOLIC ACID [Concomitant]
     Route: 048
  5. LASIX [Concomitant]
     Route: 048
     Dates: start: 20040427
  6. FISH OIL [Concomitant]
  7. COREG [Concomitant]
     Route: 048
     Dates: start: 20040827, end: 20040827
  8. LOPID [Concomitant]
     Route: 048
  9. LANOXIN [Concomitant]
     Route: 048
  10. ASPIRIN [Concomitant]
     Route: 048
  11. ACCURETIC [Concomitant]
     Dosage: DOSE VALUE:  20-12.5 MG
     Route: 048
  12. CRESTOR [Concomitant]
     Route: 048
  13. L-CARNITINE [Concomitant]
     Route: 048
  14. CO-Q-10 [Concomitant]
     Route: 048

REACTIONS (1)
  - BACK PAIN [None]
